FAERS Safety Report 6702253-3 (Version None)
Quarter: 2010Q2

REPORT INFORMATION
  Report Type: 
  Country: None (occurrence: None)
  Receive Date: 20100429
  Receipt Date: 20100426
  Transmission Date: 20101027
  Serious: Yes (Hospitalization)
  Sender: FDA-Public Use
  Company Number: US-MERCK-0903USA04197

PATIENT
  Age: 51 Year
  Sex: Female
  Weight: 68 kg

DRUGS (3)
  1. FOSAMAX [Suspect]
     Indication: OSTEOPOROSIS
     Route: 048
     Dates: start: 19960101, end: 20050601
  2. FOSAMAX [Suspect]
     Route: 048
     Dates: start: 20020718, end: 20050502
  3. PRILOSEC [Concomitant]
     Indication: GASTROOESOPHAGEAL REFLUX DISEASE
     Route: 065
     Dates: start: 19930101, end: 20030101

REACTIONS (44)
  - ABDOMINAL PAIN [None]
  - ABDOMINAL PAIN UPPER [None]
  - ADVERSE EVENT [None]
  - ANAEMIA [None]
  - ANXIETY [None]
  - ARTHRITIS [None]
  - ASTHENIA [None]
  - BLOOD CHOLESTEROL INCREASED [None]
  - BLOOD POTASSIUM DECREASED [None]
  - BONE DISORDER [None]
  - BREAST DISORDER [None]
  - BURNING SENSATION [None]
  - CATARACT NUCLEAR [None]
  - CONSTIPATION [None]
  - DEHYDRATION [None]
  - DEPRESSION [None]
  - DIZZINESS [None]
  - DYSPHONIA [None]
  - EYE INFECTION [None]
  - FALL [None]
  - FEMUR FRACTURE [None]
  - FRACTURE NONUNION [None]
  - HEADACHE [None]
  - HYPERTONIC BLADDER [None]
  - HYPOAESTHESIA [None]
  - INCREASED UPPER AIRWAY SECRETION [None]
  - MENIERE'S DISEASE [None]
  - MIGRAINE [None]
  - MUSCLE SPASMS [None]
  - MUSCULOSKELETAL PAIN [None]
  - MYALGIA [None]
  - NECK PAIN [None]
  - ORAL HERPES [None]
  - OSTEOPENIA [None]
  - PLANTAR FASCIITIS [None]
  - PSORIASIS [None]
  - SINUS CONGESTION [None]
  - SINUSITIS [None]
  - SKIN INJURY [None]
  - SLEEP APNOEA SYNDROME [None]
  - SLEEP DISORDER [None]
  - URINARY TRACT INFECTION [None]
  - VAGINAL INFECTION [None]
  - WEIGHT FLUCTUATION [None]
